FAERS Safety Report 17092741 (Version 2)
Quarter: 2019Q4

REPORT INFORMATION
  Report Type: Report from Study
  Country: US (occurrence: US)
  Receive Date: 20191129
  Receipt Date: 20191213
  Transmission Date: 20200122
  Serious: Yes (Hospitalization, Other)
  Sender: FDA-Public Use
  Company Number: US-ASPEN-GLO2019US012552

PATIENT
  Age: 16 Year
  Sex: Male
  Weight: 64.5 kg

DRUGS (7)
  1. METHOTREXATE. [Suspect]
     Active Substance: METHOTREXATE
     Indication: ACUTE LYMPHOCYTIC LEUKAEMIA
     Dosage: 15 MG DAILY (DAY 29,36)
     Route: 037
     Dates: start: 20190918, end: 20190926
  2. VINCRISTINE [Suspect]
     Active Substance: VINCRISTINE
     Indication: ACUTE LYMPHOCYTIC LEUKAEMIA
     Dosage: 2 MG DAILY (DAY 43, 50)
     Route: 042
     Dates: start: 20191003, end: 20191010
  3. CYTARABINE. [Suspect]
     Active Substance: CYTARABINE
     Indication: ACUTE LYMPHOCYTIC LEUKAEMIA
     Dosage: 127 MG DAILY (DAY 29-31, 36-39)
     Route: 042
     Dates: start: 20190918, end: 20190929
  4. TIOGUANINE [Suspect]
     Active Substance: THIOGUANINE ANHYDROUS
     Indication: ACUTE LYMPHOCYTIC LEUKAEMIA
     Dosage: 100 MG DAILY (DAY 29-42)
     Route: 048
     Dates: start: 20190918
  5. CYCLOPHOSPHAMIDE. [Suspect]
     Active Substance: CYCLOPHOSPHAMIDE
     Indication: ACUTE LYMPHOCYTIC LEUKAEMIA
     Dosage: 1692 MG (DAY 29)
     Route: 042
     Dates: start: 20190918, end: 20190918
  6. INCB018242 (RUXOLITINIB) [Suspect]
     Active Substance: RUXOLITINIB
     Indication: ACUTE LYMPHOCYTIC LEUKAEMIA
     Dosage: 85 MG QD (DAY 29-42), DELAYED INTESIFICATION
     Route: 048
     Dates: start: 20190918, end: 20191002
  7. PEGASPARGASE [Suspect]
     Active Substance: PEGASPARGASE
     Indication: ACUTE LYMPHOCYTIC LEUKAEMIA
     Dosage: 4125 IU, DELAYED INTESIFICATION (DAY 43)
     Route: 042
     Dates: start: 20191003, end: 20191003

REACTIONS (1)
  - Sepsis [Recovered/Resolved]

NARRATIVE: CASE EVENT DATE: 20191019
